FAERS Safety Report 13370185 (Version 1)
Quarter: 2017Q1

REPORT INFORMATION
  Report Type: Spontaneous
  Country: CN (occurrence: CN)
  Receive Date: 20170324
  Receipt Date: 20170324
  Transmission Date: 20170429
  Serious: Yes (Hospitalization)
  Sender: FDA-Public Use
  Company Number: CN-ASTRAZENECA-2017SE30560

PATIENT
  Age: 82 Year
  Sex: Female

DRUGS (3)
  1. LANSOPRAZOLE. [Interacting]
     Active Substance: LANSOPRAZOLE
     Indication: PEPTIC ULCER
     Route: 042
     Dates: start: 20160118, end: 20160120
  2. LANSOPRAZOLE. [Interacting]
     Active Substance: LANSOPRAZOLE
     Indication: PEPTIC ULCER
     Route: 042
     Dates: start: 20160126, end: 20160130
  3. MEROPENEM. [Suspect]
     Active Substance: MEROPENEM
     Indication: ANTI-INFECTIVE THERAPY
     Route: 042
     Dates: start: 20160126, end: 20160205

REACTIONS (2)
  - Drug interaction [Unknown]
  - Thrombocytopenia [Recovered/Resolved]
